FAERS Safety Report 6567169-4 (Version None)
Quarter: 2010Q1

REPORT INFORMATION
  Report Type: 
  Country: None (occurrence: None)
  Receive Date: 20100202
  Receipt Date: 20100122
  Transmission Date: 20100710
  Serious: Yes (Hospitalization)
  Sender: FDA-Public Use
  Company Number: FR-BAXTER-2010BH001804

PATIENT
  Age: 46 Year
  Sex: Female

DRUGS (12)
  1. ENDOXAN BAXTER [Suspect]
     Indication: BREAST CANCER
     Route: 042
     Dates: start: 20090217
  2. ENDOXAN BAXTER [Suspect]
     Route: 042
     Dates: start: 20090310
  3. CARDIOXANE [Suspect]
     Indication: BREAST CANCER
     Route: 042
     Dates: start: 20090217
  4. CARDIOXANE [Suspect]
     Route: 042
     Dates: start: 20090310
  5. DEXAMETHASONE [Suspect]
     Indication: BREAST CANCER
     Route: 042
     Dates: start: 20090217
  6. DEXAMETHASONE [Suspect]
     Route: 042
     Dates: start: 20090310
  7. ZOPHREN [Suspect]
     Indication: BREAST CANCER
     Route: 042
     Dates: start: 20090217
  8. ZOPHREN [Suspect]
     Route: 042
     Dates: start: 20090310
  9. EPIRUBICIN HYDROCHLORIDE [Suspect]
     Indication: BREAST CANCER
     Route: 042
     Dates: start: 20090217
  10. EPIRUBICIN HYDROCHLORIDE [Suspect]
     Route: 042
     Dates: start: 20090310
  11. FLUOROURACIL [Suspect]
     Indication: BREAST CANCER
     Route: 042
     Dates: start: 20090217
  12. FLUOROURACIL [Suspect]
     Route: 042
     Dates: start: 20090310

REACTIONS (2)
  - DEEP VEIN THROMBOSIS [None]
  - PULMONARY EMBOLISM [None]
